FAERS Safety Report 8722466 (Version 2)
Quarter: 2012Q4

REPORT INFORMATION
  Report Type: 
  Country: US (occurrence: US)
  Receive Date: 20120814
  Receipt Date: 20121109
  Transmission Date: 20130627
  Serious: Yes (Other)
  Sender: FDA-Public Use
  Company Number: US-ELI_LILLY_AND_COMPANY-US201208001277

PATIENT
  Age: 55 Year
  Sex: Female

DRUGS (2)
  1. HUMALOG LISPRO [Suspect]
     Indication: DIABETES MELLITUS
     Dosage: 12 u, tid
  2. LANTUS [Concomitant]
     Indication: DIABETES MELLITUS
     Dosage: 65 u, bid

REACTIONS (4)
  - Exploratory operation [Unknown]
  - Cystitis [Not Recovered/Not Resolved]
  - Urinary tract infection [Not Recovered/Not Resolved]
  - Visual acuity reduced [Not Recovered/Not Resolved]
